FAERS Safety Report 6607320-0 (Version None)
Quarter: 2010Q1

REPORT INFORMATION
  Report Type: 
  Country: None (occurrence: None)
  Receive Date: 20100228
  Receipt Date: 20100222
  Transmission Date: 20100710
  Serious: Yes (Hospitalization)
  Sender: FDA-Public Use
  Company Number: DE-BRISTOL-MYERS SQUIBB COMPANY-14987283

PATIENT
  Age: 65 Year
  Sex: Male

DRUGS (11)
  1. APROVEL FILM-COATED TABS [Suspect]
     Route: 048
     Dates: end: 20091026
  2. SEROQUEL [Suspect]
     Dosage: UNK-15OCT2009; DOSE REDUCED TO 200MG/D 16OCT2009-ONG; TAB
     Route: 048
  3. OXCARBAZEPINE [Suspect]
     Dosage: FILM COATED TABS
     Route: 048
     Dates: start: 20090701, end: 20091013
  4. HYDROCHLOROTHIAZIDE [Suspect]
     Dosage: TAB
     Route: 048
     Dates: end: 20091019
  5. MELPERONE HCL [Suspect]
     Route: 048
  6. TREVILOR [Concomitant]
     Dates: start: 20091009
  7. ZOLPIDEM [Concomitant]
  8. TAVOR [Concomitant]
     Dates: start: 20091014
  9. MOVICOL [Concomitant]
     Dates: start: 20091009, end: 20091027
  10. CARVEDILOL [Concomitant]
  11. LEVOTHYROXINE SODIUM [Concomitant]

REACTIONS (1)
  - HYPONATRAEMIA [None]
